FAERS Safety Report 7145745-8 (Version None)
Quarter: 2010Q4

REPORT INFORMATION
  Report Type: 
  Country: None (occurrence: None)
  Receive Date: 20101208
  Receipt Date: 20101201
  Transmission Date: 20110411
  Serious: Yes (Hospitalization)
  Sender: FDA-Public Use
  Company Number: AT-SANOFI-AVENTIS-2010SA063495

PATIENT
  Age: 55 Year
  Sex: Female
  Weight: 76 kg

DRUGS (3)
  1. TAXOTERE [Suspect]
     Indication: BREAST CANCER
     Route: 041
     Dates: start: 20100701, end: 20100701
  2. TAXOTERE [Suspect]
     Route: 041
     Dates: start: 20100902, end: 20100902
  3. FORTECORTIN [Concomitant]
     Route: 048
     Dates: start: 20100701, end: 20100905

REACTIONS (2)
  - DIPLOPIA [None]
  - NEUROTOXICITY [None]
